FAERS Safety Report 19919990 (Version 1)
Quarter: 2021Q4

REPORT INFORMATION
  Report Type: Report from Study
  Country: EG (occurrence: EG)
  Receive Date: 20211005
  Receipt Date: 20211005
  Transmission Date: 20220303
  Serious: Yes (Other)
  Sender: FDA-Public Use
  Company Number: EG-NOVARTISPH-NVSC2021EG221518

PATIENT
  Age: 42 Year
  Sex: Male

DRUGS (7)
  1. ENTRESTO [Suspect]
     Active Substance: SACUBITRIL\VALSARTAN
     Indication: Cardiac failure
     Dosage: 50 MG, BID
     Route: 048
     Dates: start: 20190501
  2. ENTRESTO [Suspect]
     Active Substance: SACUBITRIL\VALSARTAN
     Dosage: 100 MG, BID
     Route: 048
     Dates: start: 2020
  3. ENTRESTO [Suspect]
     Active Substance: SACUBITRIL\VALSARTAN
     Dosage: 50 MG, BID
     Route: 048
     Dates: start: 2020
  4. LASIX [Concomitant]
     Active Substance: FUROSEMIDE
     Indication: Pulmonary oedema
     Dosage: 500 MG
     Route: 065
     Dates: start: 20210430
  5. CORTISONE [Concomitant]
     Active Substance: CORTISONE
     Indication: Product used for unknown indication
     Dosage: INJECTION WAS TAKEN ONCE ONLY
     Route: 065
  6. CORTISONE [Concomitant]
     Active Substance: CORTISONE
     Indication: Product used for unknown indication
     Dosage: CORTISONE TABLETS ARE TAKEN FROM 2020, SOMETIMES HE TAKES ONE TABLET ONCE DAILY AND SOMETIMES HALF A
     Route: 065
     Dates: start: 2020
  7. SERETIDE [Concomitant]
     Active Substance: FLUTICASONE PROPIONATE\SALMETEROL XINAFOATE
     Indication: Dyspnoea
     Dosage: UNK UNK, PRN
     Route: 055

REACTIONS (11)
  - Pulmonary oedema [Recovering/Resolving]
  - Ejection fraction decreased [Unknown]
  - Insomnia [Not Recovered/Not Resolved]
  - Fatigue [Recovering/Resolving]
  - Adrenal insufficiency [Recovering/Resolving]
  - Alopecia [Recovered/Resolved]
  - Fluid retention [Recovering/Resolving]
  - Dizziness [Recovering/Resolving]
  - Presyncope [Recovering/Resolving]
  - Speech disorder [Recovering/Resolving]
  - Hypotension [Recovering/Resolving]

NARRATIVE: CASE EVENT DATE: 20200101
